FAERS Safety Report 5346200-8 (Version None)
Quarter: 2007Q2

REPORT INFORMATION
  Report Type: 
  Country: None (occurrence: None)
  Receive Date: 20070605
  Receipt Date: 20070525
  Transmission Date: 20071010
  Serious: Yes (Hospitalization)
  Sender: FDA-Public Use
  Company Number: NO-JNJFOC-20070506819

PATIENT
  Age: 40 Year
  Sex: Female
  Weight: 57 kg

DRUGS (4)
  1. INFLIXIMAB [Suspect]
     Indication: ARTHRITIS
     Route: 042
  2. PREDNISOLONE [Concomitant]
  3. METHOTREXATE SODIUM [Concomitant]
  4. PARACETAMOL [Concomitant]

REACTIONS (2)
  - DRUG RESISTANCE [None]
  - LUPUS-LIKE SYNDROME [None]
